FAERS Safety Report 17437322 (Version 1)
Quarter: 2020Q1

REPORT INFORMATION
  Report Type: Other
  Country: US (occurrence: US)
  Receive Date: 20200219
  Receipt Date: 20200219
  Transmission Date: 20200409
  Serious: Yes (Life-Threatening, Other)
  Sender: FDA-Public Use
  Company Number: US-C B FLEET CO INC-202002-US-000656

PATIENT
  Sex: Female

DRUGS (2)
  1. CHLORASEPTIC SORE THROAT MENTHOL [Suspect]
     Active Substance: PHENOL
     Indication: OROPHARYNGEAL PAIN
     Dosage: USED ONE SPRAY
     Route: 048
     Dates: start: 20200204, end: 20200204
  2. ANTIBIOTIC [Concomitant]
     Active Substance: UNSPECIFIED INGREDIENT

REACTIONS (3)
  - Facial paralysis [None]
  - Swelling face [Recovered/Resolved]
  - Lip swelling [Recovered/Resolved]

NARRATIVE: CASE EVENT DATE: 20200204
